FAERS Safety Report 5468647-1 (Version None)
Quarter: 2007Q3

REPORT INFORMATION
  Report Type: 
  Country: None (occurrence: None)
  Receive Date: 20070926
  Receipt Date: 20070925
  Transmission Date: 20080115
  Serious: Yes (Other)
  Sender: FDA-Public Use
  Company Number: A0683809A

PATIENT
  Age: 35 Year
  Sex: Male

DRUGS (3)
  1. ALLI [Suspect]
     Indication: WEIGHT LOSS DIET
     Route: 048
     Dates: start: 20070907, end: 20070921
  2. BEER [Suspect]
     Indication: DRUG USE FOR UNKNOWN INDICATION
     Dosage: 12BT UNKNOWN
     Route: 048
     Dates: start: 20070923, end: 20070923
  3. METFORMIN [Concomitant]
     Dosage: 500MG TWICE PER DAY

REACTIONS (3)
  - ALCOHOL USE [None]
  - PROCTALGIA [None]
  - RECTAL HAEMORRHAGE [None]
